FAERS Safety Report 8532715-8 (Version None)
Quarter: 2012Q3

REPORT INFORMATION
  Report Type: 
  Country: None (occurrence: None)
  Receive Date: 20120724
  Receipt Date: 20120717
  Transmission Date: 20120928
  Serious: Yes (Hospitalization)
  Sender: FDA-Public Use
  Company Number: PHHY2012CA047837

PATIENT
  Sex: Male

DRUGS (2)
  1. IBUPROFEN [Concomitant]
  2. SANDOSTATIN LAR [Suspect]
     Indication: ACROMEGALY
     Dosage: 30 MG, QMO
     Route: 048
     Dates: start: 20110601

REACTIONS (7)
  - PARAESTHESIA [None]
  - DYSPNOEA [None]
  - NECK PAIN [None]
  - FALL [None]
  - URTICARIA [None]
  - BACK PAIN [None]
  - TACHYCARDIA [None]
